FAERS Safety Report 9180991 (Version 3)
Quarter: 2013Q4

REPORT INFORMATION
  Report Type: Spontaneous
  Country: US (occurrence: US)
  Receive Date: 20130322
  Receipt Date: 20131210
  Transmission Date: 20140711
  Serious: Yes (Life-Threatening, Hospitalization)
  Sender: FDA-Public Use
  Company Number: PHEH2013US006452

PATIENT
  Age: 83 Year
  Sex: Male

DRUGS (10)
  1. EXELON PATCH [Suspect]
     Indication: DEMENTIA
     Dosage: 4.6 MG, UNK
     Route: 062
  2. EXELON PATCH [Suspect]
     Dosage: 13.3 MG, UNK
     Route: 062
     Dates: start: 201302
  3. EXELON PATCH [Suspect]
     Dosage: 4.6 MG, UNK
     Route: 062
  4. EXELON PATCH [Suspect]
     Dosage: 9.5 MG, UNK
     Route: 062
     Dates: start: 20131111
  5. WARFARIN [Concomitant]
     Dosage: UNK UKN, UNK
  6. AMLODIPINE [Concomitant]
     Dosage: 5/10 MG
  7. ATORVASTATIN [Concomitant]
     Indication: BLOOD CHOLESTEROL ABNORMAL
     Dosage: 20 MG, UNK
  8. NAMENDA [Concomitant]
     Dosage: 10 MG, BID
  9. ASA [Concomitant]
     Dosage: 81 MG, UNK
  10. ARICEPT [Concomitant]
     Dosage: UNK UKN, UNK

REACTIONS (5)
  - Malaise [Unknown]
  - Dizziness [Unknown]
  - Vomiting [Unknown]
  - Nausea [Recovered/Resolved]
  - Drug dispensing error [Unknown]
